FAERS Safety Report 8912939 (Version 2)
Quarter: 2012Q4

REPORT INFORMATION
  Report Type: Report from Study
  Country: TR (occurrence: TR)
  Receive Date: 20121116
  Receipt Date: 20121126
  Transmission Date: 20130627
  Serious: Yes (Life-Threatening)
  Sender: FDA-Public Use
  Company Number: TR-GLAXOSMITHKLINE-B0845327A

PATIENT
  Age: 61 Year
  Sex: Female
  Weight: 74 kg

DRUGS (2)
  1. LAPATINIB [Suspect]
     Indication: NEOPLASM MALIGNANT
     Dosage: 1250MG Per day
     Route: 048
     Dates: start: 20110926, end: 20120727
  2. CAPECITABINE [Suspect]
     Indication: NEOPLASM MALIGNANT
     Route: 048
     Dates: start: 20110926, end: 20120727

REACTIONS (1)
  - Cardiac failure [Not Recovered/Not Resolved]
